FAERS Safety Report 21843396 (Version 1)
Quarter: 2023Q1

REPORT INFORMATION
  Report Type: Spontaneous
  Country: JP (occurrence: JP)
  Receive Date: 20230110
  Receipt Date: 20230110
  Transmission Date: 20230417
  Serious: Yes (Other)
  Sender: FDA-Public Use
  Company Number: JP-TEVA-2023-JP-2844639

PATIENT
  Age: 4 Decade
  Sex: Male

DRUGS (5)
  1. IRINOTECAN [Suspect]
     Active Substance: IRINOTECAN
     Indication: Rectal cancer stage III
     Dosage: FOLFOXIRI REGIMEN FOUR COURSES , 165 MG/M2
     Route: 065
  2. FLUOROURACIL [Suspect]
     Active Substance: FLUOROURACIL
     Indication: Rectal cancer stage III
     Dosage: FOLFOXIRI REGIMEN FOUR COURSES , 3200 MG/M2
     Route: 065
  3. LEUCOVORIN [Suspect]
     Active Substance: LEUCOVORIN
     Indication: Rectal cancer stage III
     Dosage: FOLFOXIRI REGIMEN FOUR COURSES , 200 MG/M2
     Route: 065
  4. OXALIPLATIN [Suspect]
     Active Substance: OXALIPLATIN
     Indication: Rectal cancer stage III
     Dosage: FOLFOXIRI REGIMEN FOUR COURSES , 85 MG/M2
     Route: 065
  5. CETUXIMAB [Suspect]
     Active Substance: CETUXIMAB
     Indication: Rectal cancer stage III
     Dosage: FOUR COURSES , 500 MG
     Route: 065

REACTIONS (2)
  - Neutropenia [Unknown]
  - Haematotoxicity [Unknown]
